FAERS Safety Report 9870863 (Version 1)
Quarter: 2014Q1

REPORT INFORMATION
  Report Type: Spontaneous
  Country: CA (occurrence: None)
  Receive Date: 20140203
  Receipt Date: 20140203
  Transmission Date: 20141002
  Serious: Yes (Hospitalization)
  Sender: FDA-Public Use
  Company Number: IPC201401-000055

PATIENT
  Age: 83 Year
  Sex: Female

DRUGS (18)
  1. FUROSEMIDE [Suspect]
     Dosage: 40 MG, EVERY MORNING
  2. METOPROLOL TARTRATE [Suspect]
     Indication: CORONARY ARTERY BYPASS
  3. AMLODIPINE BESILATE [Suspect]
     Indication: HYPERTENSION
  4. NITROGLYCERINE [Suspect]
     Indication: ANGINA PECTORIS
     Dosage: 0.4 MG, BID (ON AT 9 AM; OFF AT 10 PM)
  5. NITROGLYCERINE [Suspect]
     Indication: ANGINA PECTORIS
     Dosage: 0.4 MG, AS NEEDED
  6. VITAMIN C [Concomitant]
  7. RAMIPRIL [Concomitant]
  8. CLOPIDOGREL [Concomitant]
  9. ATORVASTATIN [Concomitant]
  10. ESCITALOPRAM [Concomitant]
  11. ZOPICLONE (ZOPICLONE) (ZOPICLONE) [Concomitant]
  12. OXAZEPAM [Concomitant]
  13. VITAMIN D [Concomitant]
  14. HYDROXYCHLOROQUINE SULFATE (HYDROXYCHLOROQUINE SULFATE) (HYDROXYCHLOROQUINE SULFATE) [Concomitant]
  15. CODEINE (CODEINE) (CODEINE) [Concomitant]
  16. ACETAMINOPHEN [Concomitant]
  17. PANTOPRAZOLE [Concomitant]
  18. POLYETHYLENE GLYCOL (POLYETHYLENE GLYCOL) (POLYETHYLENE GLYCOL) [Concomitant]

REACTIONS (21)
  - Hypotension [None]
  - Oedema peripheral [None]
  - Bradycardia [None]
  - Hypokalaemia [None]
  - Fall [None]
  - Pain [None]
  - Back pain [None]
  - Arthralgia [None]
  - Neck pain [None]
  - Musculoskeletal pain [None]
  - Poor quality sleep [None]
  - Activities of daily living impaired [None]
  - Dizziness [None]
  - Balance disorder [None]
  - Gait disturbance [None]
  - Visual impairment [None]
  - Muscular weakness [None]
  - Orthostatic hypotension [None]
  - Depressed mood [None]
  - Anxiety [None]
  - Mobility decreased [None]
